FAERS Safety Report 24457538 (Version 1)
Quarter: 2024Q4

REPORT INFORMATION
  Report Type: Spontaneous
  Country: CN (occurrence: CN)
  Receive Date: 20241018
  Receipt Date: 20241018
  Transmission Date: 20250115
  Serious: No
  Sender: ROCHE
  Company Number: CN-BoehringerIngelheim-2023-BI-268864

PATIENT
  Age: 78 Year
  Sex: Female
  Weight: 75.0 kg

DRUGS (1)
  1. ALTEPLASE [Suspect]
     Active Substance: ALTEPLASE
     Indication: Cerebral infarction
     Dosage: 6.75 MG OF ALTEPLASE WAS INJECTED INTRAVENOUSLY, ALTEPLASE WAS SUBSEQUENTLY PUMPED IN AT A RATE OF 6
     Route: 042
     Dates: start: 20231014, end: 20231014

REACTIONS (2)
  - Gingival bleeding [Recovering/Resolving]
  - Tongue haemorrhage [Unknown]

NARRATIVE: CASE EVENT DATE: 20231014
